FAERS Safety Report 12275758 (Version 3)
Quarter: 2016Q2

REPORT INFORMATION
  Report Type: Report from Study
  Country: PT (occurrence: PT)
  Receive Date: 20160418
  Receipt Date: 20160518
  Transmission Date: 20160815
  Serious: Yes (Death)
  Sender: FDA-Public Use
  Company Number: PT-ROCHE-1740917

PATIENT
  Age: 52 Year
  Sex: Female
  Weight: 56 kg

DRUGS (7)
  1. METHOTREXATE [Suspect]
     Active Substance: METHOTREXATE
     Indication: RHEUMATOID ARTHRITIS
     Route: 048
     Dates: end: 20110706
  2. TOCILIZUMAB [Suspect]
     Active Substance: TOCILIZUMAB
     Dosage: TOTAL MONTHLY DOSE (MG): 8GM/KG
     Route: 042
     Dates: start: 20110608
  3. TOCILIZUMAB [Suspect]
     Active Substance: TOCILIZUMAB
     Indication: RHEUMATOID ARTHRITIS
     Dosage: TOTAL MONTHLY DOSE (MG): 8GM/KG
     Route: 042
     Dates: start: 20100714
  4. METHYLPREDNISOLONE. [Suspect]
     Active Substance: METHYLPREDNISOLONE
     Indication: RHEUMATOID ARTHRITIS
     Route: 048
  5. TOCILIZUMAB [Suspect]
     Active Substance: TOCILIZUMAB
     Dosage: TOTAL MONTHLY DOSE (MG): 8GM/KG
     Route: 042
     Dates: start: 20110413
  6. TOCILIZUMAB [Suspect]
     Active Substance: TOCILIZUMAB
     Dosage: TOTAL MONTHLY DOSE (MG): 8GM/KG
     Route: 042
     Dates: start: 20110511
  7. TOCILIZUMAB [Suspect]
     Active Substance: TOCILIZUMAB
     Dosage: TOTAL MONTHLY DOSE (MG): 8GM/KG
     Route: 042
     Dates: start: 20110706, end: 20110706

REACTIONS (3)
  - Pulmonary embolism [Fatal]
  - Metastases to liver [Fatal]
  - Adenocarcinoma of colon [Fatal]

NARRATIVE: CASE EVENT DATE: 201107
